FAERS Safety Report 4324760-3 (Version None)
Quarter: 2004Q1

REPORT INFORMATION
  Report Type: 
  Country: None (occurrence: None)
  Receive Date: 20040322
  Receipt Date: 20040311
  Transmission Date: 20041129
  Serious: Yes (Life-Threatening)
  Sender: FDA-Public Use
  Company Number: 2004SE01421

PATIENT
  Age: 60 Year
  Sex: Male

DRUGS (1)
  1. BLOPRESS [Suspect]
     Indication: HYPERTENSION
     Dosage: 8 MG DAILY PO
     Route: 048
     Dates: start: 20040201, end: 20040303

REACTIONS (2)
  - ANAPHYLACTIC SHOCK [None]
  - TYPE I HYPERSENSITIVITY [None]
